FAERS Safety Report 4584378-4 (Version None)
Quarter: 2005Q1

REPORT INFORMATION
  Report Type: 
  Country: None (occurrence: None)
  Receive Date: 20050216
  Receipt Date: 20050207
  Transmission Date: 20050727
  Serious: Yes (Other)
  Sender: FDA-Public Use
  Company Number: FR-NOVOPROD-242165

PATIENT
  Age: 77 Year
  Sex: Male
  Weight: 84 kg

DRUGS (3)
  1. NOVONORM [Suspect]
     Indication: DIABETES MELLITUS NON-INSULIN-DEPENDENT
     Dosage: 6 TAB, QD
     Route: 048
     Dates: start: 20041001, end: 20050108
  2. ENALAPRIL MALEATE [Concomitant]
     Route: 048
     Dates: start: 19950101
  3. ATORVASTATIN [Concomitant]
     Dosage: UNK, UNK
     Route: 048
     Dates: start: 20020101

REACTIONS (1)
  - HYPOGLYCAEMIC COMA [None]
